FAERS Safety Report 8621759-3 (Version None)
Quarter: 2012Q3

REPORT INFORMATION
  Report Type: 
  Country: None (occurrence: None)
  Receive Date: 20120821
  Receipt Date: 20120821
  Transmission Date: 20120928
  Serious: Yes (Other)
  Sender: FDA-Public Use
  Company Number: None

PATIENT
  Sex: Female

DRUGS (1)
  1. OCTREOTIDE ACETATE [Suspect]
     Indication: GASTRIC DISORDER
     Dosage: 50MCG DAILY AT BEDTIME SQ
     Route: 058
     Dates: start: 20120719, end: 20120815

REACTIONS (1)
  - VISUAL ACUITY REDUCED [None]
